FAERS Safety Report 9304071 (Version 1)
Quarter: 2013Q2

REPORT INFORMATION
  Report Type: Report from Study
  Country: DE (occurrence: DE)
  Receive Date: 20130522
  Receipt Date: 20130522
  Transmission Date: 20140414
  Serious: Yes (Hospitalization)
  Sender: FDA-Public Use
  Company Number: DE-ABBOTT-13P-062-1091920-00

PATIENT
  Age: 65 Year
  Sex: Female
  Weight: 69 kg

DRUGS (3)
  1. HUMIRA [Suspect]
     Indication: CROHN^S DISEASE
     Route: 058
     Dates: start: 20120222, end: 201212
  2. HUMIRA [Suspect]
     Dates: start: 201301
  3. METHOTREXATE [Concomitant]
     Indication: CROHN^S DISEASE

REACTIONS (4)
  - Intestinal dilatation [Recovered/Resolved]
  - Ileal stenosis [Recovered/Resolved]
  - Eye swelling [Recovering/Resolving]
  - Erythema [Recovering/Resolving]
